FAERS Safety Report 22057412 (Version 1)
Quarter: 2023Q1

REPORT INFORMATION
  Report Type: Spontaneous
  Country: US (occurrence: None)
  Receive Date: 20230303
  Receipt Date: 20230303
  Transmission Date: 20230417
  Serious: No
  Sender: FDA-Public Use
  Company Number: 2023A043513

PATIENT

DRUGS (3)
  1. QUETIAPINE FUMARATE [Suspect]
     Active Substance: QUETIAPINE FUMARATE
     Indication: Bipolar disorder
     Dosage: 600.0MG UNKNOWN
     Route: 048
     Dates: end: 2017
  2. QUETIAPINE FUMARATE [Suspect]
     Active Substance: QUETIAPINE FUMARATE
     Indication: Bipolar disorder
     Dosage: 300.0MG UNKNOWN
     Route: 048
     Dates: end: 2017
  3. QUETIAPINE FUMARATE [Suspect]
     Active Substance: QUETIAPINE FUMARATE
     Indication: Bipolar disorder
     Dosage: 250.0MG UNKNOWN
     Route: 048
     Dates: end: 2017

REACTIONS (10)
  - Gastrooesophageal reflux disease [Recovered/Resolved]
  - Hair texture abnormal [Not Recovered/Not Resolved]
  - Pruritus [Not Recovered/Not Resolved]
  - Toothache [Unknown]
  - Visual impairment [Unknown]
  - Behaviour disorder [Unknown]
  - Hyperhidrosis [Unknown]
  - Photosensitivity reaction [Unknown]
  - Insomnia [Unknown]
  - Dizziness [Unknown]
